FAERS Safety Report 14489817 (Version 5)
Quarter: 2018Q1

REPORT INFORMATION
  Report Type: Spontaneous
  Country: US (occurrence: US)
  Receive Date: 20180206
  Receipt Date: 20180327
  Transmission Date: 20180509
  Serious: Yes (Hospitalization)
  Sender: FDA-Public Use
  Company Number: US-ASTRAZENECA-2018SE11365

PATIENT
  Age: 18 Year
  Sex: Female
  Weight: 54.4 kg

DRUGS (11)
  1. FASENRA [Suspect]
     Active Substance: BENRALIZUMAB
     Indication: ASTHMA
     Route: 058
     Dates: start: 20180125
  2. LAMICTAL [Concomitant]
     Active Substance: LAMOTRIGINE
  3. ACTIVELLA [Concomitant]
     Active Substance: ESTRADIOL\NORETHINDRONE ACETATE
  4. PREDNISONE. [Concomitant]
     Active Substance: PREDNISONE
     Dosage: 40.0MG UNKNOWN
     Dates: start: 20180124
  5. XOPENEX [Concomitant]
     Active Substance: LEVALBUTEROL HYDROCHLORIDE
  6. SYMBICORT [Concomitant]
     Active Substance: BUDESONIDE\FORMOTEROL FUMARATE DIHYDRATE
     Dosage: 160
  7. OMEPRAZOLE. [Suspect]
     Active Substance: OMEPRAZOLE
     Route: 048
     Dates: start: 201309
  8. RANITIDINE. [Concomitant]
     Active Substance: RANITIDINE
  9. CALCIUM WITH VITAMIN D [Concomitant]
     Active Substance: CALCIUM\VITAMIN D
  10. DEPO-PROVERA [Concomitant]
     Active Substance: MEDROXYPROGESTERONE ACETATE
  11. XOLAIR [Concomitant]
     Active Substance: OMALIZUMAB
     Indication: CHRONIC SPONTANEOUS URTICARIA

REACTIONS (11)
  - Dyspnoea [Unknown]
  - Pain [Unknown]
  - Tachycardia [Unknown]
  - Asthma [Unknown]
  - Headache [Unknown]
  - Myalgia [Unknown]
  - Chest pain [Unknown]
  - Respiratory distress [Unknown]
  - Chronic rhinosinusitis with nasal polyps [Unknown]
  - Pyrexia [Unknown]
  - Tremor [Unknown]
